FAERS Safety Report 16805212 (Version 1)
Quarter: 2019Q4

REPORT INFORMATION
  Report Type: Spontaneous
  Country: US (occurrence: US)
  Receive Date: 20190913
  Receipt Date: 20190913
  Transmission Date: 20200122
  Serious: No
  Sender: FDA-Public Use
  Company Number: None

PATIENT
  Age: 39 Year
  Weight: 55.8 kg

DRUGS (2)
  1. VITAMIN D [Concomitant]
     Active Substance: VITAMIN D NOS
  2. SYNTHROID [Suspect]
     Active Substance: LEVOTHYROXINE SODIUM
     Indication: PRODUCT USED FOR UNKNOWN INDICATION
     Dosage: ?          QUANTITY:1 TABLET(S);?
     Route: 048

REACTIONS (11)
  - Feeling cold [None]
  - Anxiety [None]
  - Memory impairment [None]
  - Wheelchair user [None]
  - Hypothalamo-pituitary disorder [None]
  - Temperature regulation disorder [None]
  - False positive investigation result [None]
  - Mood swings [None]
  - Psychogenic seizure [None]
  - Hot flush [None]
  - Dysphagia [None]

NARRATIVE: CASE EVENT DATE: 20091111
